FAERS Safety Report 5779376-9 (Version None)
Quarter: 2008Q2

REPORT INFORMATION
  Report Type: 
  Country: None (occurrence: None)
  Receive Date: 20080619
  Receipt Date: 20071010
  Transmission Date: 20081010
  Serious: No
  Sender: FDA-Public Use
  Company Number: US-ASTRAZENECA-2007UW23555

PATIENT
  Age: 39 Year
  Sex: Male

DRUGS (4)
  1. ATACAND [Suspect]
     Indication: BLOOD PRESSURE
     Route: 048
  2. ATACAND [Suspect]
     Route: 048
  3. NIASPAN [Concomitant]
  4. ASPIRIN [Concomitant]

REACTIONS (5)
  - BLOOD GLUCOSE ABNORMAL [None]
  - DEHYDRATION [None]
  - DIZZINESS [None]
  - HYPOTENSION [None]
  - PROTEIN TOTAL INCREASED [None]
